FAERS Safety Report 21890311 (Version 1)
Quarter: 2023Q1

REPORT INFORMATION
  Report Type: Spontaneous
  Country: GB (occurrence: GB)
  Receive Date: 20230120
  Receipt Date: 20230120
  Transmission Date: 20230417
  Serious: Yes (Life-Threatening)
  Sender: FDA-Public Use
  Company Number: None

PATIENT
  Age: 82 Year
  Sex: Female

DRUGS (15)
  1. ESTRADIOL [Suspect]
     Active Substance: ESTRADIOL
  2. AMOXICILLIN [Concomitant]
     Active Substance: AMOXICILLIN
     Dosage: 500 MG, 3X/DAY
     Dates: start: 20220701
  3. ASPIRIN [Concomitant]
     Active Substance: ASPIRIN
  4. BISOPROLOL [Concomitant]
     Active Substance: BISOPROLOL
     Dosage: 1.25 MG, 1X/DAY
     Dates: start: 20220701
  5. DOXAZOSIN [Concomitant]
     Active Substance: DOXAZOSIN MESYLATE
     Dosage: 2 MG, 1X/DAY, EACH EVENING
     Dates: start: 20220701
  6. EDOXABAN [Concomitant]
     Active Substance: EDOXABAN
     Dosage: 60 MG, 1X/DAY
     Dates: start: 20220701
  7. OMEPRAZOLE [Concomitant]
     Active Substance: OMEPRAZOLE
     Dosage: 20 MG, 1X/DAY, EACH MORNING ON AN EMPTY STOMACH IF NEEDED
  8. ACETAMINOPHEN\DIHYDROCODEINE BITARTRATE [Concomitant]
     Active Substance: ACETAMINOPHEN\DIHYDROCODEINE BITARTRATE
  9. ACETAMINOPHEN [Concomitant]
     Active Substance: ACETAMINOPHEN
     Indication: Pain
     Dosage: ONE OR TWO TO BE TAKEN UP TO FOUR TIMES A DAY
     Dates: start: 20220701
  10. PHOLCODINE [Concomitant]
     Active Substance: PHOLCODINE
     Dosage: 10MG/5MLONE 5ML SPOONFUL NOCTE / 2.5MLS UP TO 3X A DAY DURING DAYTIME
     Dates: start: 20220701
  11. ROSUVASTATIN [Concomitant]
     Active Substance: ROSUVASTATIN
     Dosage: 5 MG, 1X/DAY, EACH NIGHT
     Dates: start: 20220701
  12. TRAMADOL [Concomitant]
     Active Substance: TRAMADOL
  13. VAGIFEM [Concomitant]
     Active Substance: ESTRADIOL
     Dosage: 10 UG
  14. GAVISCON ADVANCE PEPPERMINT [Concomitant]
     Dosage: ONE OR TWO TO BE CHEWED AFTER MEALS AND AT BEDTIME
  15. AMILORIDE HYDROCHLORIDE\HYDROCHLOROTHIAZIDE [Concomitant]
     Active Substance: AMILORIDE HYDROCHLORIDE\HYDROCHLOROTHIAZIDE
     Dosage: 2.5MG/25MGEACH MORNING
     Dates: start: 20220701

REACTIONS (2)
  - Ischaemic stroke [Unknown]
  - Vertebrobasilar insufficiency [Unknown]
